FAERS Safety Report 13384062 (Version 2)
Quarter: 2017Q2

REPORT INFORMATION
  Report Type: Spontaneous
  Country: FR (occurrence: FR)
  Receive Date: 20170329
  Receipt Date: 20170428
  Transmission Date: 20170830
  Serious: Yes (Hospitalization)
  Sender: FDA-Public Use
  Company Number: FR-SA-2017SA021629

PATIENT
  Age: 83 Year
  Sex: Female
  Weight: 44 kg

DRUGS (6)
  1. DIFFU K [Concomitant]
     Active Substance: POTASSIUM CHLORIDE
  2. RIFADIN [Suspect]
     Active Substance: RIFAMPIN
     Indication: OSTEITIS
     Dosage: STRENGTH:300 MG
     Route: 047
     Dates: start: 20161214, end: 20161216
  3. TWYNSTA [Concomitant]
     Active Substance: AMLODIPINE BESYLATE\TELMISARTAN
  4. CALCIDOSE [Concomitant]
     Active Substance: CALCIUM CARBONATE
  5. LEVOFLOXACIN. [Suspect]
     Active Substance: LEVOFLOXACIN
     Indication: OSTEITIS
     Route: 048
     Dates: start: 20161214, end: 20161216
  6. LORAZEPAM. [Concomitant]
     Active Substance: LORAZEPAM
     Indication: ANXIETY
     Route: 048
     Dates: start: 20161217

REACTIONS (8)
  - Medication error [Unknown]
  - Upper limb fracture [Recovering/Resolving]
  - Vertigo [Recovered/Resolved]
  - Headache [Recovered/Resolved]
  - Nausea [Recovered/Resolved]
  - Asthenia [Recovered/Resolved]
  - Abdominal pain [Recovered/Resolved]
  - Fall [Recovering/Resolving]

NARRATIVE: CASE EVENT DATE: 20161215
